FAERS Safety Report 10019768 (Version 2)
Quarter: 2014Q2

REPORT INFORMATION
  Report Type: Spontaneous
  Country: US (occurrence: US)
  Receive Date: 20140318
  Receipt Date: 20140404
  Transmission Date: 20141212
  Serious: Yes (Death, Hospitalization)
  Sender: FDA-Public Use
  Company Number: US-ACTELION-A-US2014-96086

PATIENT
  Age: 63 Year
  Sex: Male

DRUGS (4)
  1. OPSUMIT [Suspect]
     Indication: PULMONARY ARTERIAL HYPERTENSION
     Dosage: 10 MG, QD
     Route: 048
     Dates: start: 20140211
  2. REMODULIN [Concomitant]
  3. WARFARIN [Concomitant]
  4. ADCIRCA [Concomitant]

REACTIONS (6)
  - Multi-organ failure [Fatal]
  - Sepsis [Unknown]
  - Cholecystitis infective [Unknown]
  - Biliary drainage [Unknown]
  - Gallbladder operation [Unknown]
  - Syncope [Unknown]
